FAERS Safety Report 13414218 (Version 2)
Quarter: 2017Q4

REPORT INFORMATION
  Report Type: Spontaneous
  Country: US (occurrence: US)
  Receive Date: 20170406
  Receipt Date: 20171121
  Transmission Date: 20180320
  Serious: No
  Sender: FDA-Public Use
  Company Number: US-JNJFOC-20170319216

PATIENT
  Sex: Male

DRUGS (4)
  1. RISPERDAL [Suspect]
     Active Substance: RISPERIDONE
     Indication: PSYCHOTIC DISORDER
     Route: 048
     Dates: start: 20110902, end: 20140402
  2. RISPERIDONE. [Suspect]
     Active Substance: RISPERIDONE
     Indication: PSYCHOTIC DISORDER
     Route: 048
     Dates: start: 20110902, end: 20120118
  3. INVEGA SUSTENNA [Suspect]
     Active Substance: PALIPERIDONE PALMITATE
     Indication: PSYCHOTIC DISORDER
     Dosage: IN VARYING DOSES OF 156 MG, 117 MG
     Route: 030
     Dates: start: 20120120, end: 20140108
  4. INVEGA [Suspect]
     Active Substance: PALIPERIDONE
     Indication: PRODUCT USED FOR UNKNOWN INDICATION
     Route: 048
     Dates: start: 20110902, end: 20140402

REACTIONS (2)
  - Gynaecomastia [Unknown]
  - Emotional disorder [Unknown]
